FAERS Safety Report 9426930 (Version 2)
Quarter: 2013Q3

REPORT INFORMATION
  Report Type: Spontaneous
  Country: US (occurrence: US)
  Receive Date: 20130730
  Receipt Date: 20130828
  Transmission Date: 20140515
  Serious: Yes (Other)
  Sender: FDA-Public Use
  Company Number: US-PERRIGO-13US007621

PATIENT
  Age: 53 Year
  Sex: Male
  Weight: 90.7 kg

DRUGS (3)
  1. IBUPROFEN 200 MG 604 [Suspect]
     Indication: PAIN
     Dosage: 400 MG, TWICE
     Route: 048
     Dates: start: 20130717, end: 20130717
  2. IBUPROFEN 200 MG 604 [Suspect]
     Indication: LIGAMENT SPRAIN
  3. IBUPROFEN 200 MG 604 [Suspect]
     Indication: MUSCLE STRAIN

REACTIONS (5)
  - Loss of consciousness [Recovered/Resolved]
  - Asthenia [Recovering/Resolving]
  - Vision blurred [Recovering/Resolving]
  - Hypertension [Unknown]
  - Dizziness [Recovering/Resolving]
